FAERS Safety Report 4485261-5 (Version None)
Quarter: 2004Q4

REPORT INFORMATION
  Report Type: 
  Country: None (occurrence: None)
  Receive Date: 20041021
  Receipt Date: 20041006
  Transmission Date: 20050328
  Serious: Yes (Death, Congenital Anomaly)
  Sender: FDA-Public Use
  Company Number: 2004-BP-06642BP

PATIENT
  Sex: Female

DRUGS (2)
  1. VIRAMUNE [Suspect]
     Indication: HIV INFECTION
     Dosage: IU
     Route: 015
     Dates: start: 20021118
  2. COMBIVIR [Suspect]
     Indication: HIV INFECTION
     Dosage: PO
     Route: 048
     Dates: start: 20021104

REACTIONS (4)
  - BLOOD TEST ABNORMAL [None]
  - DRUG EXPOSURE DURING PREGNANCY [None]
  - SPINAL DEFORMITY [None]
  - STILLBIRTH [None]
